FAERS Safety Report 6519010-3 (Version None)
Quarter: 2009Q4

REPORT INFORMATION
  Report Type: 
  Country: None (occurrence: None)
  Receive Date: 20091228
  Receipt Date: 20091214
  Transmission Date: 20100525
  Serious: Yes (Hospitalization)
  Sender: FDA-Public Use
  Company Number: TW-MILLENNIUM PHARMACEUTICALS, INC.-2009-05186

PATIENT

DRUGS (3)
  1. VELCADE [Suspect]
     Indication: MULTIPLE MYELOMA
     Dosage: 1.0 MG/M2, UNK
     Route: 042
     Dates: start: 20091109
  2. MELPHALAN [Suspect]
     Indication: MULTIPLE MYELOMA
     Dosage: 6.75 MG/M2, UNK
     Route: 048
     Dates: start: 20091109
  3. DEXAMETHASONE [Suspect]
     Indication: MULTIPLE MYELOMA
     Dosage: 30 MG, UNK
     Route: 048
     Dates: start: 20091109

REACTIONS (3)
  - DIARRHOEA [None]
  - NEUROGENIC BLADDER [None]
  - URINARY TRACT INFECTION [None]
